FAERS Safety Report 20804057 (Version 1)
Quarter: 2022Q2

REPORT INFORMATION
  Report Type: Report from Study
  Country: US (occurrence: US)
  Receive Date: 20220509
  Receipt Date: 20220509
  Transmission Date: 20220721
  Serious: Yes (Other)
  Sender: FDA-Public Use
  Company Number: US-GILEAD-2022-0571897

PATIENT
  Age: 49 Year
  Sex: Female

DRUGS (12)
  1. AMBRISENTAN [Suspect]
     Active Substance: AMBRISENTAN
     Indication: Pulmonary hypertension
     Dosage: 10 MG, QD
     Route: 065
     Dates: start: 201702
  2. AMBRISENTAN [Suspect]
     Active Substance: AMBRISENTAN
     Indication: Pulmonary arterial hypertension
  3. TYVASO [Suspect]
     Active Substance: TREPROSTINIL
     Indication: Pulmonary arterial hypertension
     Dosage: 0.6 MG, QID
     Route: 065
     Dates: start: 20220224
  4. TYVASO [Suspect]
     Active Substance: TREPROSTINIL
     Indication: Pulmonary hypertension
     Dosage: 0.29 MG, QID
     Route: 065
     Dates: start: 20220224
  5. TYVASO [Suspect]
     Active Substance: TREPROSTINIL
     Dosage: 72 UG (12 BREATHS), QID
     Route: 065
     Dates: start: 20220224
  6. TYVASO [Suspect]
     Active Substance: TREPROSTINIL
     Dosage: 108 UG, QID
     Route: 065
     Dates: start: 20220224
  7. TYVASO [Suspect]
     Active Substance: TREPROSTINIL
     Dosage: 12 MG (20 BREATHS), QID
     Route: 065
     Dates: start: 202203
  8. ADCIRCA [Suspect]
     Active Substance: TADALAFIL
     Indication: Pulmonary arterial hypertension
     Dosage: 40 MG, QD
     Route: 065
     Dates: start: 20220211
  9. ADCIRCA [Suspect]
     Active Substance: TADALAFIL
     Indication: Pulmonary hypertension
     Dosage: 60 MG, QD
     Route: 065
     Dates: start: 202202
  10. VELETRI [Suspect]
     Active Substance: EPOPROSTENOL
     Indication: Pulmonary arterial hypertension
     Dosage: 10 NG, Q1MINUTE
     Route: 065
     Dates: start: 20210630
  11. VELETRI [Suspect]
     Active Substance: EPOPROSTENOL
     Indication: Pulmonary hypertension
     Dosage: 10 NG, Q1MINUTE
     Route: 042
     Dates: start: 20210701
  12. VELETRI [Suspect]
     Active Substance: EPOPROSTENOL
     Dosage: 13 NG, Q1MINUTE
     Route: 065
     Dates: start: 20210702

REACTIONS (23)
  - Syncope [Unknown]
  - Chest discomfort [Not Recovered/Not Resolved]
  - Paraesthesia [Unknown]
  - Nausea [Recovered/Resolved]
  - Chills [Unknown]
  - Dizziness [Unknown]
  - Cough [Unknown]
  - Lung disorder [Unknown]
  - Disturbance in attention [Unknown]
  - Heart rate increased [Not Recovered/Not Resolved]
  - Aphasia [Unknown]
  - Anxiety [Unknown]
  - Stress [Unknown]
  - Headache [Unknown]
  - Palpitations [Unknown]
  - Muscle spasms [Unknown]
  - Device dislocation [Unknown]
  - Pain in extremity [Unknown]
  - Peripheral swelling [Unknown]
  - Eczema [Unknown]
  - Throat irritation [Not Recovered/Not Resolved]
  - Feeling abnormal [Not Recovered/Not Resolved]
  - Feeling hot [Unknown]

NARRATIVE: CASE EVENT DATE: 20220201
